FAERS Safety Report 7201809-1 (Version None)
Quarter: 2010Q4

REPORT INFORMATION
  Report Type: 
  Country: None (occurrence: None)
  Receive Date: 20101216
  Receipt Date: 20101116
  Transmission Date: 20110411
  Serious: Yes (Hospitalization)
  Sender: FDA-Public Use
  Company Number: 2010026518

PATIENT
  Sex: Female
  Weight: 52.6 kg

DRUGS (4)
  1. ZEMAIRA [Suspect]
     Indication: ALPHA-1 ANTI-TRYPSIN DEFICIENCY
     Dosage: INFUSION RATE: 4.2 ML.MIN MAX; 974 MG/VIAL INTRAVENOUS
     Route: 042
  2. METOCLOPRAMIDE [Concomitant]
  3. ADVAIR HFA [Concomitant]
  4. SPIRIVA [Concomitant]

REACTIONS (1)
  - CONFUSIONAL STATE [None]
